FAERS Safety Report 7928706-8 (Version None)
Quarter: 2011Q4

REPORT INFORMATION
  Report Type: 
  Country: None (occurrence: None)
  Receive Date: 20111118
  Receipt Date: 20111114
  Transmission Date: 20120403
  Serious: Yes (Other)
  Sender: FDA-Public Use
  Company Number: US-ABBOTT-11P-163-0839966-00

PATIENT
  Sex: Female
  Weight: 69.916 kg

DRUGS (9)
  1. HUMIRA [Suspect]
     Indication: CROHN'S DISEASE
     Route: 058
     Dates: start: 20111101
  2. HUMIRA [Suspect]
     Route: 058
     Dates: start: 20110501, end: 20110701
  3. CEPHALEXIN [Suspect]
     Indication: ANTIBIOTIC PROPHYLAXIS
     Dates: start: 20110701, end: 20110701
  4. VALTREX [Concomitant]
     Indication: SKIN DISORDER
  5. LORTAB [Concomitant]
     Indication: NECK PAIN
     Dosage: 5/500 MG DAILY PRN
  6. PHENOBARBITAL AND BELLADONNA [Concomitant]
     Indication: CROHN'S DISEASE
     Dosage: ONCE DAILY
     Dates: start: 20110801
  7. HUMIRA [Suspect]
     Dates: start: 20111101
  8. MERCAPTOPURINE [Concomitant]
     Indication: PRODUCT USED FOR UNKNOWN INDICATION
     Dosage: 50 MG DAILY
     Dates: start: 20110701
  9. VITAMIN D [Concomitant]
     Indication: PRODUCT USED FOR UNKNOWN INDICATION
     Dosage: DAILY
     Dates: start: 20110701

REACTIONS (6)
  - INCORRECT DOSE ADMINISTERED [None]
  - ARTHRALGIA [None]
  - PAIN IN EXTREMITY [None]
  - URTICARIA [None]
  - BREAST MASS [None]
  - BREAST HAEMATOMA [None]
